FAERS Safety Report 21664600 (Version 1)
Quarter: 2022Q4

REPORT INFORMATION
  Report Type: Spontaneous
  Country: GB (occurrence: GB)
  Receive Date: 20221130
  Receipt Date: 20221130
  Transmission Date: 20230113
  Serious: Yes (Other)
  Sender: FDA-Public Use
  Company Number: GB-MHRA-MED-202204101554224520-NXQYB

PATIENT
  Sex: Female

DRUGS (2)
  1. RISPERDAL [Suspect]
     Active Substance: RISPERIDONE
     Indication: Mental disorder
     Dosage: 4MG /2MG; ;
     Route: 065
     Dates: start: 201911
  2. ORPHENADRINE HYDROCHLORIDE [Concomitant]
     Active Substance: ORPHENADRINE HYDROCHLORIDE
     Dosage: 50MG/5ML

REACTIONS (2)
  - Menopause [Not Recovered/Not Resolved]
  - Menstruation delayed [Not Recovered/Not Resolved]
